FAERS Safety Report 16596922 (Version 1)
Quarter: 2019Q3

REPORT INFORMATION
  Report Type: Spontaneous
  Country: US (occurrence: US)
  Receive Date: 20190719
  Receipt Date: 20190719
  Transmission Date: 20191004
  Serious: Yes (Hospitalization)
  Sender: FDA-Public Use
  Company Number: US-SAOL THERAPEUTICS-2019SAO00282

PATIENT
  Age: 26 Year
  Sex: Male
  Weight: 70 kg

DRUGS (2)
  1. LIORESAL [Suspect]
     Active Substance: BACLOFEN
     Indication: HEAD INJURY
     Dosage: 460 ?G, \DAY
     Route: 037
  2. LIORESAL [Suspect]
     Active Substance: BACLOFEN
     Indication: MUSCLE SPASTICITY
     Dosage: 920.3 ?G, \DAY
     Route: 037

REACTIONS (2)
  - Drug withdrawal syndrome [Unknown]
  - Product dose omission [Recovered/Resolved]

NARRATIVE: CASE EVENT DATE: 20190618
